FAERS Safety Report 7225147-6 (Version None)
Quarter: 2011Q1

REPORT INFORMATION
  Report Type: 
  Country: None (occurrence: None)
  Receive Date: 20110113
  Receipt Date: 20110105
  Transmission Date: 20110831
  Serious: Yes (Death)
  Sender: FDA-Public Use
  Company Number: A0903339A

PATIENT
  Age: 82 Year
  Sex: Male

DRUGS (15)
  1. DUONEB [Concomitant]
  2. HYDROXYCHLOROQUINE SULFATE [Concomitant]
  3. POTASSIUM CL [Concomitant]
  4. PROMACTA [Suspect]
     Dosage: 50MG PER DAY
     Route: 048
     Dates: start: 20100101
  5. LASIX [Concomitant]
  6. ACYCLOVIR [Concomitant]
  7. AVODART [Concomitant]
  8. OMEPRAZOLE [Concomitant]
  9. THEOPHYLLINE [Concomitant]
  10. UNKNOWN [Concomitant]
  11. FORADIL [Concomitant]
  12. TAMSULOSIN [Concomitant]
  13. CARVEDILOL [Concomitant]
  14. DIGOXIN [Concomitant]
  15. BUPROPION [Concomitant]

REACTIONS (1)
  - DEATH [None]
